FAERS Safety Report 6095828-9 (Version None)
Quarter: 2009Q1

REPORT INFORMATION
  Report Type: 
  Country: None (occurrence: None)
  Receive Date: 20090227
  Receipt Date: 20080703
  Transmission Date: 20090719
  Serious: No
  Sender: FDA-Public Use
  Company Number: A0734355A

PATIENT
  Sex: Male

DRUGS (2)
  1. LAMICTAL [Suspect]
     Indication: ANXIETY
     Dosage: 25MG TWICE PER DAY
     Route: 048
     Dates: start: 20080501
  2. NO CONCURRENT MEDICATION [Concomitant]

REACTIONS (4)
  - ABDOMINAL PAIN UPPER [None]
  - DIARRHOEA [None]
  - DRUG INEFFECTIVE [None]
  - NERVOUSNESS [None]
